FAERS Safety Report 7298350-7 (Version None)
Quarter: 2011Q1

REPORT INFORMATION
  Report Type: 
  Country: None (occurrence: None)
  Receive Date: 20110217
  Receipt Date: 20110204
  Transmission Date: 20110831
  Serious: Yes (Death, Other)
  Sender: FDA-Public Use
  Company Number: JP-BAYER-2011-011600

PATIENT
  Sex: Female
  Weight: 36 kg

DRUGS (5)
  1. ADVANCED RENAL CELL CARCINOMA, SORAFENIB 400MG [Suspect]
     Dosage: 400 MG, UNK
     Dates: start: 20090915, end: 20100808
  2. CEFMETAZON [Concomitant]
     Dosage: 2 G, UNK
     Route: 042
     Dates: start: 20091022, end: 20091028
  3. FRESMIN [Concomitant]
     Dosage: 2 MG, UNK
     Route: 042
     Dates: start: 20090911, end: 20100326
  4. ADVANCED RENAL CELL CARCINOMA, SORAFENIB 400MG [Suspect]
     Indication: RENAL CELL CARCINOMA
     Dosage: DAILY DOSE 400 MG
     Route: 048
     Dates: start: 20090826, end: 20090906
  5. SULPERAZON [Concomitant]
     Dosage: 2 G, UNK
     Route: 042
     Dates: start: 20090917, end: 20090918

REACTIONS (16)
  - HYPERTENSION [None]
  - ANAEMIA [None]
  - HYPOPHOSPHATAEMIA [None]
  - HYPOTHYROIDISM [None]
  - HOT FLUSH [None]
  - BLOOD AMYLASE INCREASED [None]
  - DELIRIUM [None]
  - HEPATIC FUNCTION ABNORMAL [None]
  - WHITE BLOOD CELL COUNT DECREASED [None]
  - EOSINOPHIL COUNT INCREASED [None]
  - BLOOD THYROID STIMULATING HORMONE INCREASED [None]
  - DEATH [None]
  - PALMAR-PLANTAR ERYTHRODYSAESTHESIA SYNDROME [None]
  - ALOPECIA [None]
  - HYPOCALCAEMIA [None]
  - RASH [None]
